FAERS Safety Report 6712942-2 (Version None)
Quarter: 2010Q2

REPORT INFORMATION
  Report Type: 
  Country: None (occurrence: None)
  Receive Date: 20100506
  Receipt Date: 20100503
  Transmission Date: 20101027
  Serious: Yes (Hospitalization, Other)
  Sender: FDA-Public Use
  Company Number: US-BRISTOL-MYERS SQUIBB COMPANY-15048648

PATIENT
  Age: 82 Year
  Sex: Male
  Weight: 85 kg

DRUGS (4)
  1. CARBOPLATIN [Suspect]
     Indication: NON-SMALL CELL LUNG CANCER
     Dates: start: 20100216
  2. TAXOL [Suspect]
     Indication: NON-SMALL CELL LUNG CANCER
     Dates: start: 20100216
  3. COUMADIN [Suspect]
     Indication: ANTICOAGULANT THERAPY
  4. RADIATION THERAPY [Suspect]
     Indication: NON-SMALL CELL LUNG CANCER
     Dosage: 1 DF:58GY,THERAPY:16FEB-19MAR10 NO OF FRACTIONS:29,NO-ELAPSED DAYS39,ADMIN:EXTERNAL BEAM,IMRT.
     Dates: start: 20100216, end: 20100331

REACTIONS (11)
  - ARRHYTHMIA [None]
  - CHEST PAIN [None]
  - DEHYDRATION [None]
  - DYSPNOEA [None]
  - FATIGUE [None]
  - GASTROINTESTINAL HAEMORRHAGE [None]
  - HYPOTENSION [None]
  - OESOPHAGITIS [None]
  - PLEURAL EFFUSION [None]
  - PNEUMONIA [None]
  - PULMONARY EMBOLISM [None]
